FAERS Safety Report 11198550 (Version 3)
Quarter: 2015Q3

REPORT INFORMATION
  Report Type: Spontaneous
  Country: JP (occurrence: JP)
  Receive Date: 20150618
  Receipt Date: 20150709
  Transmission Date: 20151125
  Serious: Yes (Death)
  Sender: FDA-Public Use
  Company Number: JP-JNJFOC-20150610111

PATIENT
  Age: 76 Year
  Sex: Male
  Weight: 71 kg

DRUGS (18)
  1. XEPLION [Suspect]
     Active Substance: PALIPERIDONE PALMITATE
     Indication: SCHIZOPHRENIA
     Route: 030
     Dates: start: 20131211, end: 20131211
  2. RISPERIDONE. [Suspect]
     Active Substance: RISPERIDONE
     Indication: SCHIZOPHRENIA
     Dosage: AS NEEDED (P.R.N.)
     Route: 048
     Dates: start: 20131111, end: 20150604
  3. ROZEREM [Concomitant]
     Active Substance: RAMELTEON
     Indication: INSOMNIA
     Route: 048
     Dates: start: 20131111, end: 20150604
  4. SORENTMIN [Concomitant]
     Active Substance: BROTIZOLAM
     Indication: INSOMNIA
     Route: 048
     Dates: start: 20131111, end: 20150604
  5. AROTINOLOL HYDROCHLORIDE [Concomitant]
     Active Substance: AROTINOLOL HYDROCHLORIDE
     Indication: HYPERTENSION
     Route: 048
     Dates: end: 20150604
  6. MAGNESIUM OXIDE. [Concomitant]
     Active Substance: MAGNESIUM OXIDE
     Indication: CONSTIPATION
     Route: 048
     Dates: end: 20150604
  7. XEPLION [Suspect]
     Active Substance: PALIPERIDONE PALMITATE
     Indication: SCHIZOPHRENIA
     Route: 030
     Dates: start: 20140108, end: 20140108
  8. CARBAMAZEPINE. [Concomitant]
     Active Substance: CARBAMAZEPINE
     Indication: SCHIZOPHRENIA
     Route: 048
     Dates: end: 20150604
  9. AKIRIDEN [Concomitant]
     Active Substance: BIPERIDEN
     Indication: AKATHISIA
     Route: 048
     Dates: end: 20150604
  10. SENNA [Concomitant]
     Active Substance: SENNA LEAF\SENNOSIDES\SENNOSIDES A AND B
     Indication: CONSTIPATION
     Route: 048
     Dates: end: 20150604
  11. MECOBALAMIN [Concomitant]
     Active Substance: METHYLCOBALAMIN
     Indication: NEUROPATHY PERIPHERAL
     Route: 048
  12. VENA [Concomitant]
     Active Substance: DIPHENHYDRAMINE HYDROCHLORIDE
     Indication: PRURITUS
     Route: 048
     Dates: start: 20131111, end: 20150604
  13. AMLODIPINE  BESILATE [Concomitant]
     Active Substance: AMLODIPINE BESYLATE
     Indication: HYPERTENSION
     Route: 048
     Dates: end: 20150604
  14. LANDSEN [Concomitant]
     Active Substance: CLONAZEPAM
     Indication: SCHIZOPHRENIA
     Route: 048
     Dates: end: 20150604
  15. JANUVIA [Concomitant]
     Active Substance: SITAGLIPTIN PHOSPHATE
     Indication: DIABETES MELLITUS
     Route: 048
     Dates: end: 20150604
  16. EBASTINE [Concomitant]
     Active Substance: EBASTINE
     Indication: PRURITUS
     Route: 048
     Dates: end: 20150604
  17. XEPLION [Suspect]
     Active Substance: PALIPERIDONE PALMITATE
     Indication: SCHIZOPHRENIA
     Route: 030
     Dates: start: 20140205, end: 20150604
  18. MICARDIS [Concomitant]
     Active Substance: TELMISARTAN
     Indication: HYPERTENSION
     Route: 048
     Dates: end: 20150604

REACTIONS (1)
  - Sudden death [Fatal]

NARRATIVE: CASE EVENT DATE: 20150609
